FAERS Safety Report 5232618-0 (Version None)
Quarter: 2007Q1

REPORT INFORMATION
  Report Type: 
  Country: None (occurrence: None)
  Receive Date: 20070206
  Receipt Date: 20070206
  Transmission Date: 20070707
  Serious: Yes (Hospitalization)
  Sender: FDA-Public Use
  Company Number: None

PATIENT
  Age: 78 Year
  Sex: Male
  Weight: 109.7705 kg

DRUGS (17)
  1. WARFARIN SODIUM [Suspect]
     Indication: PULMONARY EMBOLISM
     Dosage: 3.75 MG QPM OR UT. DICT. PO
     Route: 048
     Dates: start: 20050505, end: 20061226
  2. DEXAMETHASONE [Concomitant]
  3. LACTULOSE [Concomitant]
  4. ALLOPURINOL SODIUM [Concomitant]
  5. DOXEPIN HCL [Concomitant]
  6. PSEUDOEPHEDRINE HCL [Concomitant]
  7. LISINOPRIL [Concomitant]
  8. LEVOTHYROXINE SODIUM [Concomitant]
  9. FUROSEMIDE [Concomitant]
  10. POTASSIUM CHLORIDE [Concomitant]
  11. FLUTAMIDE [Concomitant]
  12. CALCIUM/VITAMIN D [Concomitant]
  13. GOSERELIN [Concomitant]
  14. PANTOPRAZOLE SODIUM [Concomitant]
  15. MORPHINE SULFATE [Concomitant]
  16. HYDROCODONE/ACETAMINOPHEN [Concomitant]
  17. FERROUS SULFATE [Concomitant]

REACTIONS (9)
  - ARTERIOVENOUS MALFORMATION [None]
  - CONTUSION [None]
  - GASTROINTESTINAL ULCER [None]
  - HELICOBACTER INFECTION [None]
  - HYPOTENSION [None]
  - INTERNATIONAL NORMALISED RATIO INCREASED [None]
  - TACHYCARDIA [None]
  - THROMBOSIS [None]
  - UPPER GASTROINTESTINAL HAEMORRHAGE [None]
